FAERS Safety Report 5541625-X (Version None)
Quarter: 2007Q4

REPORT INFORMATION
  Report Type: 
  Country: None (occurrence: None)
  Receive Date: 20071210
  Receipt Date: 20041201
  Transmission Date: 20080405
  Serious: Yes (Other)
  Sender: FDA-Public Use
  Company Number: FR-JNJFOC-20071103963

PATIENT
  Age: 30 Year
  Sex: Female
  Weight: 95 kg

DRUGS (1)
  1. HALOPERIDOL DECANOATE [Suspect]
     Indication: PSYCHOTIC DISORDER
     Route: 050

REACTIONS (1)
  - WEIGHT INCREASED [None]
